FAERS Safety Report 10754982 (Version 1)
Quarter: 2015Q1

REPORT INFORMATION
  Report Type: Spontaneous
  Country: US (occurrence: None)
  Receive Date: 20150130
  Receipt Date: 20150130
  Transmission Date: 20150721
  Serious: No
  Sender: FDA-Public Use
  Company Number: None

PATIENT
  Age: 52 Year
  Sex: Female

DRUGS (1)
  1. BELVIQ [Suspect]
     Active Substance: LORCASERIN HYDROCHLORIDE
     Indication: WEIGHT CONTROL
     Dosage: TAKEN BY MOUTH; 1 PILL

REACTIONS (6)
  - Paranoia [None]
  - Suicidal ideation [None]
  - Aggression [None]
  - Depression [None]
  - Anxiety [None]
  - Loss of employment [None]
